FAERS Safety Report 7395283-2 (Version None)
Quarter: 2011Q1

REPORT INFORMATION
  Report Type: 
  Country: None (occurrence: None)
  Receive Date: 20110331
  Receipt Date: 20110331
  Transmission Date: 20110831
  Serious: Yes (Hospitalization)
  Sender: FDA-Public Use
  Company Number: None

PATIENT
  Sex: Female
  Weight: 87.1 kg

DRUGS (12)
  1. EFFEXOR [Concomitant]
  2. NORCO [Concomitant]
  3. MS CONTIN [Concomitant]
  4. OXYCODONE [Concomitant]
  5. IXABEPILONE [Suspect]
     Indication: BREAST CANCER
     Dosage: 16MG/M2 WEEKLY X 3 WEEKS
     Dates: start: 20110322
  6. IXABEPILONE [Suspect]
     Indication: BREAST CANCER
     Dosage: 16MG/M2 WEEKLY X 3 WEEKS
     Dates: start: 20110308
  7. IXABEPILONE [Suspect]
     Indication: BREAST CANCER
     Dosage: 16MG/M2 WEEKLY X 3 WEEKS
     Dates: start: 20110315
  8. VORINOSTAT [Concomitant]
     Indication: BREAST CANCER
     Dosage: 300MG DAILY D1=7+ D15-21
     Dates: start: 20110307, end: 20110313
  9. VORINOSTAT [Concomitant]
     Indication: BREAST CANCER
     Dosage: 300MG DAILY D1=7+ D15-21
     Dates: start: 20110321, end: 20110327
  10. IBUPROFEN [Concomitant]
  11. LEVOXYL [Concomitant]
  12. ALPRAZOLAM [Concomitant]

REACTIONS (3)
  - MALNUTRITION [None]
  - DEHYDRATION [None]
  - CRYING [None]
